FAERS Safety Report 18144933 (Version 1)
Quarter: 2020Q3

REPORT INFORMATION
  Report Type: Spontaneous
  Country: US (occurrence: US)
  Receive Date: 20200813
  Receipt Date: 20200813
  Transmission Date: 20201103
  Serious: Yes (Hospitalization)
  Sender: FDA-Public Use
  Company Number: None

PATIENT
  Age: 82 Year
  Sex: Female
  Weight: 68.58 kg

DRUGS (3)
  1. ELIQUIS (APIXIBAN) 5 MG [Concomitant]
  2. REVLIMID (LENALIDOMIDE) 10 MG [Concomitant]
     Dates: start: 20200806, end: 20200809
  3. UDENYCA [Suspect]
     Active Substance: PEGFILGRASTIM-CBQV
     Indication: MYELODYSPLASTIC SYNDROME
     Dosage: ?          OTHER FREQUENCY:Q21DAYS;?
     Route: 058
     Dates: start: 20200511, end: 20200803

REACTIONS (2)
  - Pulmonary alveolar haemorrhage [None]
  - Haemoptysis [None]

NARRATIVE: CASE EVENT DATE: 20200809
